FAERS Safety Report 17214305 (Version 1)
Quarter: 2020Q1

REPORT INFORMATION
  Report Type: Spontaneous
  Country: US (occurrence: US)
  Receive Date: 20191227
  Receipt Date: 20191227
  Transmission Date: 20200409
  Serious: Yes (Disabling, Other)
  Sender: FDA-Public Use
  Company Number: None

PATIENT
  Age: 71 Year
  Sex: Female
  Weight: 65.25 kg

DRUGS (25)
  1. NIACIN. [Concomitant]
     Active Substance: NIACIN
  2. GABAPENTIN 100 MG CAPSULES [Suspect]
     Active Substance: GABAPENTIN
     Indication: PAIN
     Dosage: ?          QUANTITY:3 CAPSULE(S);?
     Route: 048
  3. LEVOTHYROXINE. [Concomitant]
     Active Substance: LEVOTHYROXINE
  4. MULTIVITAMIN [Concomitant]
     Active Substance: VITAMINS
  5. D-RIBOSE [Concomitant]
     Active Substance: DIETARY SUPPLEMENT
  6. VITAMIN C [Concomitant]
     Active Substance: ASCORBIC ACID
  7. MELATONIN [Concomitant]
     Active Substance: MELATONIN
  8. SILDENAFIL. [Concomitant]
     Active Substance: SILDENAFIL
  9. OXYGEN. [Concomitant]
     Active Substance: OXYGEN
  10. CALCIUM CITRATE [Concomitant]
     Active Substance: CALCIUM CITRATE
  11. SUPERDIGEST TABLETS [Concomitant]
  12. DHEA [Concomitant]
     Active Substance: PRASTERONE
  13. HYDROCHLOROTHIAZIDE. [Concomitant]
     Active Substance: HYDROCHLOROTHIAZIDE
  14. VITAMIN D3 [Concomitant]
     Active Substance: CHOLECALCIFEROL
  15. ZINC. [Concomitant]
     Active Substance: ZINC
  16. DIAZEPAM. [Concomitant]
     Active Substance: DIAZEPAM
  17. LOSARTAN. [Concomitant]
     Active Substance: LOSARTAN
  18. WARFARIN [Concomitant]
     Active Substance: WARFARIN
  19. CALCIUM CITRATE [Concomitant]
     Active Substance: CALCIUM CITRATE
  20. RED YEAST RICE [Concomitant]
     Active Substance: DIETARY SUPPLEMENT
  21. VERAPAMIL [Concomitant]
     Active Substance: VERAPAMIL HYDROCHLORIDE
  22. ATROVASTATIN [Concomitant]
     Active Substance: ATORVASTATIN CALCIUM
  23. B-COMPLES [Concomitant]
  24. MAGNESIUM [Concomitant]
     Active Substance: MAGNESIUM
  25. COQ1 [Concomitant]

REACTIONS (4)
  - Depression [None]
  - Diplopia [None]
  - Osteonecrosis [None]
  - Fall [None]

NARRATIVE: CASE EVENT DATE: 20190930
